FAERS Safety Report 7965076-3 (Version None)
Quarter: 2011Q4

REPORT INFORMATION
  Report Type: 
  Country: None (occurrence: None)
  Receive Date: 20111205
  Receipt Date: 20111124
  Transmission Date: 20120403
  Serious: Yes (Other)
  Sender: FDA-Public Use
  Company Number: GER/UKI/11/0022088

PATIENT
  Age: 38 Year
  Sex: Female

DRUGS (11)
  1. TOPAMAX [Suspect]
     Indication: EPILEPSY
     Dosage: 50 MG, 1 IN 1 D, ORAL ; 100 MG, 2 IN 1 D ; 50 MG, 2 IN 1 D ; 150 MG, 1 IN 1 D ; 50 MG
     Route: 048
     Dates: start: 20110830, end: 20110830
  2. TOPAMAX [Suspect]
     Indication: EPILEPSY
     Dosage: 50 MG, 1 IN 1 D, ORAL ; 100 MG, 2 IN 1 D ; 50 MG, 2 IN 1 D ; 150 MG, 1 IN 1 D ; 50 MG
     Route: 048
  3. TOPAMAX [Suspect]
     Indication: EPILEPSY
     Dosage: 50 MG, 1 IN 1 D, ORAL ; 100 MG, 2 IN 1 D ; 50 MG, 2 IN 1 D ; 150 MG, 1 IN 1 D ; 50 MG
     Route: 048
     Dates: start: 20101025
  4. TOPAMAX [Suspect]
     Indication: EPILEPSY
     Dosage: 50 MG, 1 IN 1 D, ORAL ; 100 MG, 2 IN 1 D ; 50 MG, 2 IN 1 D ; 150 MG, 1 IN 1 D ; 50 MG
     Route: 048
     Dates: start: 20091130, end: 20100623
  5. TOPAMAX [Suspect]
     Indication: EPILEPSY
     Dosage: 50 MG, 1 IN 1 D, ORAL ; 100 MG, 2 IN 1 D ; 50 MG, 2 IN 1 D ; 150 MG, 1 IN 1 D ; 50 MG
     Route: 048
     Dates: start: 20070703
  6. TOPAMAX [Suspect]
     Indication: EPILEPSY
     Dosage: 50 MG, 1 IN 1 D, ORAL ; 100 MG, 2 IN 1 D ; 50 MG, 2 IN 1 D ; 150 MG, 1 IN 1 D ; 50 MG
     Route: 048
     Dates: start: 20100915, end: 20100915
  7. ANTIDEPRESSANTS NOS (ANTIDEPERSSANTS) [Concomitant]
  8. FLUOXETINE HYDROCHLORIDE [Suspect]
     Indication: PRODUCT USED FOR UNKNOWN INDICATION
     Dosage: 20 MG, 1 IN 1 D
     Dates: start: 20101018, end: 20110831
  9. KEPPRA [Concomitant]
  10. FOLIC ACID [Concomitant]
  11. CLONAZEPAM [Concomitant]

REACTIONS (12)
  - PALPITATIONS [None]
  - SOMNOLENCE [None]
  - PARAESTHESIA [None]
  - ABDOMINAL PAIN UPPER [None]
  - TOOTH LOSS [None]
  - FEELING ABNORMAL [None]
  - DEPRESSION [None]
  - MOOD SWINGS [None]
  - IRRITABLE BOWEL SYNDROME [None]
  - WEIGHT DECREASED [None]
  - GINGIVAL BLEEDING [None]
  - DIARRHOEA [None]
